FAERS Safety Report 21439952 (Version 1)
Quarter: 2022Q4

REPORT INFORMATION
  Report Type: Spontaneous
  Country: US (occurrence: US)
  Receive Date: 20221011
  Receipt Date: 20221011
  Transmission Date: 20230112
  Serious: No
  Sender: FDA-Public Use
  Company Number: US-MORPHOSYS US-2022-MOR002003-US

PATIENT
  Age: 88 Year
  Sex: Female

DRUGS (2)
  1. MONJUVI [Suspect]
     Active Substance: TAFASITAMAB-CXIX
     Indication: Non-Hodgkin^s lymphoma
     Dosage: 800 MILLIGRAM, CYCLE 2, OVER 2 HOURS IN HER RIGHT ARM
     Route: 042
  2. MONJUVI [Suspect]
     Active Substance: TAFASITAMAB-CXIX
     Dosage: IN HER LEFT ARM
     Route: 042

REACTIONS (2)
  - Extravasation [Not Recovered/Not Resolved]
  - Swelling [Not Recovered/Not Resolved]
